FAERS Safety Report 17223957 (Version 1)
Quarter: 2020Q1

REPORT INFORMATION
  Report Type: Spontaneous
  Country: CA (occurrence: CA)
  Receive Date: 20200102
  Receipt Date: 20200102
  Transmission Date: 20200409
  Serious: Yes (Life-Threatening, Other)
  Sender: FDA-Public Use
  Company Number: CA-JNJFOC-20191247408

PATIENT
  Age: 54 Year
  Sex: Female
  Weight: 72 kg

DRUGS (5)
  1. ATORVASTATIN [Concomitant]
     Active Substance: ATORVASTATIN
  2. FENOFIBRATE. [Concomitant]
     Active Substance: FENOFIBRATE
  3. ASPIRIN                            /00002701/ [Concomitant]
     Active Substance: ASPIRIN
  4. TOPAMAX [Suspect]
     Active Substance: TOPIRAMATE
     Indication: MIGRAINE
     Route: 048
  5. RITALIN [Concomitant]
     Active Substance: METHYLPHENIDATE HYDROCHLORIDE

REACTIONS (4)
  - Hyperventilation [Recovering/Resolving]
  - Decreased activity [Recovering/Resolving]
  - Impaired work ability [Recovering/Resolving]
  - Metabolic acidosis [Recovering/Resolving]
